FAERS Safety Report 8734491 (Version 2)
Quarter: 2015Q2

REPORT INFORMATION
  Report Type: Report from Study
  Country: US (occurrence: US)
  Receive Date: 20120821
  Receipt Date: 20150624
  Transmission Date: 20150821
  Serious: Yes (Death)
  Sender: FDA-Public Use
  Company Number: US-ROCHE-1096831

PATIENT
  Age: 33 Year
  Sex: Female

DRUGS (2)
  1. NARCAN [Concomitant]
     Active Substance: NALOXONE HYDROCHLORIDE
     Route: 042
  2. ACTIVASE [Suspect]
     Active Substance: ALTEPLASE
     Indication: PULMONARY EMBOLISM
     Route: 040

REACTIONS (3)
  - Hypoxic-ischaemic encephalopathy [Fatal]
  - Ischaemic cardiomyopathy [Fatal]
  - Pulmonary embolism [Fatal]
